FAERS Safety Report 5082429-4 (Version None)
Quarter: 2006Q3

REPORT INFORMATION
  Report Type: 
  Country: None (occurrence: None)
  Receive Date: 20060817
  Receipt Date: 20060811
  Transmission Date: 20061208
  Serious: Yes (Hospitalization)
  Sender: FDA-Public Use
  Company Number: FR-GLAXOSMITHKLINE-B0434331A

PATIENT
  Age: 82 Year
  Sex: Female
  Weight: 85 kg

DRUGS (10)
  1. AUGMENTIN '125' [Suspect]
     Indication: CHEST X-RAY ABNORMAL
     Route: 042
     Dates: start: 20060217, end: 20060219
  2. ESIDRIX [Suspect]
     Indication: ESSENTIAL HYPERTENSION
     Route: 048
     Dates: start: 20060218, end: 20060220
  3. VOLTAREN [Suspect]
     Dosage: 100MG PER DAY
     Route: 048
     Dates: end: 20060220
  4. ZESTRIL [Suspect]
     Indication: ESSENTIAL HYPERTENSION
     Dosage: 1UNIT THREE TIMES PER DAY
     Route: 048
     Dates: start: 20060218, end: 20060220
  5. CLAFORAN [Concomitant]
     Dosage: 1G THREE TIMES PER DAY
     Route: 042
     Dates: start: 20060219
  6. LOVENOX [Concomitant]
     Route: 065
     Dates: start: 20060217
  7. RULID [Concomitant]
     Route: 065
     Dates: start: 20060219
  8. FLAGYL I.V. [Concomitant]
     Route: 065
     Dates: start: 20060219
  9. EFFERALGAN CODEINE [Concomitant]
     Route: 065
     Dates: start: 20060218
  10. ZESTORETIC [Concomitant]
     Dates: end: 20060217

REACTIONS (5)
  - BLOOD CREATININE INCREASED [None]
  - HYPERKALAEMIA [None]
  - INFLAMMATION [None]
  - PYREXIA [None]
  - RENAL FAILURE ACUTE [None]
